FAERS Safety Report 17996214 (Version 1)
Quarter: 2020Q3

REPORT INFORMATION
  Report Type: Spontaneous
  Country: GB (occurrence: GB)
  Receive Date: 20200708
  Receipt Date: 20200708
  Transmission Date: 20201103
  Serious: Yes (Hospitalization, Other)
  Sender: FDA-Public Use
  Company Number: GB-TEVA-2020-GB-1797592

PATIENT
  Age: 72 Year
  Sex: Male
  Weight: 101.6 kg

DRUGS (6)
  1. BENZYLPENICILLIN [Concomitant]
     Active Substance: PENICILLIN G
     Dosage: 1.25 GRAM
     Route: 042
  2. CANDESARTAN. [Concomitant]
     Active Substance: CANDESARTAN
  3. CLARITHROMYCIN. [Suspect]
     Active Substance: CLARITHROMYCIN
     Indication: PNEUMONIA
     Dosage: ONE OR TWO TABLETS TWICE DAILY.
     Route: 048
     Dates: start: 20200612, end: 20200616
  4. BISOPROLOL [Concomitant]
     Active Substance: BISOPROLOL
  5. GLICLAZIDE [Concomitant]
     Active Substance: GLICLAZIDE
  6. METFORMIN [Concomitant]
     Active Substance: METFORMIN HYDROCHLORIDE

REACTIONS (3)
  - Diarrhoea [Not Recovered/Not Resolved]
  - Arthralgia [Not Recovered/Not Resolved]
  - Rash macular [Not Recovered/Not Resolved]

NARRATIVE: CASE EVENT DATE: 20200612
